FAERS Safety Report 24838167 (Version 3)
Quarter: 2025Q1

REPORT INFORMATION
  Report Type: Spontaneous
  Country: US (occurrence: US)
  Receive Date: 20250113
  Receipt Date: 20250327
  Transmission Date: 20250409
  Serious: No
  Sender: PFIZER
  Company Number: US-PFIZER INC-202500001800

PATIENT
  Sex: Female

DRUGS (1)
  1. ESTRING [Suspect]
     Active Substance: ESTRADIOL

REACTIONS (6)
  - Vulvovaginal pain [Unknown]
  - Patient-device incompatibility [Unknown]
  - Headache [Unknown]
  - Back pain [Unknown]
  - Wrong technique in device usage process [Unknown]
  - Intentional product misuse [Unknown]
